FAERS Safety Report 15352616 (Version 1)
Quarter: 2018Q3

REPORT INFORMATION
  Report Type: Report from Study
  Country: IT (occurrence: IT)
  Receive Date: 20180905
  Receipt Date: 20180905
  Transmission Date: 20181010
  Serious: Yes (Hospitalization)
  Sender: FDA-Public Use
  Company Number: IT-BAYER-2018-160659

PATIENT
  Age: 52 Year
  Sex: Male

DRUGS (5)
  1. RIOPAN [Concomitant]
  2. DICLOFENAC [DICLOFENAC] [Concomitant]
     Active Substance: DICLOFENAC SODIUM
  3. MOTILIUM [Concomitant]
     Active Substance: DOMPERIDONE
  4. STIVARGA [Suspect]
     Active Substance: REGORAFENIB
     Indication: NEOPLASM
     Dosage: 160 MG, QD
     Route: 048
     Dates: start: 20180414, end: 20180424
  5. SOLDESAM [Concomitant]
     Active Substance: DEXAMETHASONE

REACTIONS (5)
  - Diarrhoea [Unknown]
  - Dysphagia [Unknown]
  - Abdominal pain upper [Unknown]
  - Throat irritation [Unknown]
  - Pancytopenia [Unknown]

NARRATIVE: CASE EVENT DATE: 20180424
